FAERS Safety Report 6985373-8 (Version None)
Quarter: 2010Q3

REPORT INFORMATION
  Report Type: 
  Country: None (occurrence: None)
  Receive Date: 20100915
  Receipt Date: 20100824
  Transmission Date: 20110219
  Serious: No
  Sender: FDA-Public Use
  Company Number: US-PFIZER INC-2010107368

PATIENT
  Sex: Female
  Weight: 113.38 kg

DRUGS (15)
  1. LYRICA [Suspect]
     Indication: DIABETIC NEUROPATHY
     Dosage: 50 MG, 1X/DAY
     Dates: start: 20100603
  2. LYRICA [Suspect]
     Indication: PAIN
     Dosage: 50 MG, 2X/DAY
  3. LYRICA [Suspect]
     Dosage: 50 MG, 3X/DAY
     Route: 048
  4. ALLOPURINOL [Concomitant]
     Dosage: UNK
  5. SPIRONOLACTONE [Concomitant]
     Dosage: UNK
  6. FUROSEMIDE [Concomitant]
     Dosage: UNK
  7. TRIAMTERENE [Concomitant]
     Dosage: UNK
  8. LEVOXYL [Concomitant]
     Dosage: UNK
  9. POTASSIUM [Concomitant]
     Dosage: UNK
  10. FOLIC ACID [Concomitant]
     Dosage: UNK
  11. VITAMIN D [Concomitant]
     Dosage: UNK
  12. CRESTOR [Concomitant]
     Dosage: UNK
  13. TRAZODONE [Concomitant]
     Dosage: UNK
  14. GABAPENTIN [Concomitant]
     Indication: NEUROPATHY PERIPHERAL
     Dosage: UNK, 4X/DAY
  15. INSULIN [Concomitant]
     Dosage: UNK

REACTIONS (5)
  - BLOOD CHOLESTEROL ABNORMAL [None]
  - CHEST DISCOMFORT [None]
  - DRUG INEFFECTIVE [None]
  - OEDEMA PERIPHERAL [None]
  - PERIPHERAL COLDNESS [None]
